FAERS Safety Report 17119534 (Version 1)
Quarter: 2019Q4

REPORT INFORMATION
  Report Type: Spontaneous
  Country: GB (occurrence: GB)
  Receive Date: 20191206
  Receipt Date: 20191206
  Transmission Date: 20200122
  Serious: Yes (Disabling, Other)
  Sender: FDA-Public Use
  Company Number: GB-TEVA-2019-GB-1147017

PATIENT
  Age: 69 Year
  Sex: Female
  Weight: 69.85 kg

DRUGS (4)
  1. LEVOTHYROXINE. [Concomitant]
     Active Substance: LEVOTHYROXINE
  2. RIVAROXABAN [Concomitant]
     Active Substance: RIVAROXABAN
  3. BISOPROLOL FUMARATE. [Suspect]
     Active Substance: BISOPROLOL FUMARATE
     Indication: ATRIAL FIBRILLATION
     Dosage: 2.50 FOR A FEW MONTHS THEN 1.25 MG
     Route: 048
     Dates: end: 20190924
  4. BISOPROLOL FUMARATE. [Suspect]
     Active Substance: BISOPROLOL FUMARATE
     Dosage: 2.50 FOR A FEW MONTHS THEN 1.25
     Route: 048
     Dates: start: 20180124

REACTIONS (2)
  - Nocturia [Recovered/Resolved]
  - Pain in extremity [Recovered/Resolved]

NARRATIVE: CASE EVENT DATE: 20180124
